FAERS Safety Report 4635377-5 (Version None)
Quarter: 2005Q2

REPORT INFORMATION
  Report Type: 
  Country: None (occurrence: None)
  Receive Date: 20050411
  Receipt Date: 20050325
  Transmission Date: 20051028
  Serious: Yes (Hospitalization)
  Sender: FDA-Public Use
  Company Number: 2005S1000100

PATIENT
  Age: 34 Year
  Sex: Male
  Weight: 80.1 kg

DRUGS (5)
  1. SORIATANE [Suspect]
     Indication: PSORIASIS
     Dosage: 25 MG;QD;PO
     Route: 048
     Dates: start: 20041203, end: 20050306
  2. NYQUIL [Concomitant]
  3. NAPROXEN [Concomitant]
  4. MOTRIN [Concomitant]
  5. METHADONE HCL [Concomitant]

REACTIONS (40)
  - BACK PAIN [None]
  - BILIARY DILATATION [None]
  - BLOOD URINE PRESENT [None]
  - BOWEL SOUNDS ABNORMAL [None]
  - BRADYCARDIA [None]
  - CARDIAC FAILURE CONGESTIVE [None]
  - CARDIOMEGALY [None]
  - CATHETER RELATED INFECTION [None]
  - CHILLS [None]
  - COUGH [None]
  - CREPITATIONS [None]
  - DEHYDRATION [None]
  - DEPRESSION [None]
  - DIALYSIS [None]
  - DILATATION ATRIAL [None]
  - DRUG SCREEN POSITIVE [None]
  - GALLBLADDER ENLARGEMENT [None]
  - GLUCOSE URINE PRESENT [None]
  - HAEMATEMESIS [None]
  - HAEMATOCRIT DECREASED [None]
  - HAEMOGLOBIN DECREASED [None]
  - HEADACHE [None]
  - HEPATITIS TOXIC [None]
  - HEPATOMEGALY [None]
  - INTERNATIONAL NORMALISED RATIO INCREASED [None]
  - MITRAL VALVE DISEASE [None]
  - MYALGIA [None]
  - NASOPHARYNGITIS [None]
  - PAIN [None]
  - PAIN IN EXTREMITY [None]
  - PLATELET COUNT DECREASED [None]
  - PROTEIN URINE PRESENT [None]
  - PULMONARY HYPERTENSION [None]
  - PYREXIA [None]
  - RENAL FAILURE ACUTE [None]
  - RENAL TUBULAR NECROSIS [None]
  - SELF-MEDICATION [None]
  - TRICUSPID VALVE INCOMPETENCE [None]
  - URINE KETONE BODY PRESENT [None]
  - URINE SODIUM ABNORMAL [None]
